FAERS Safety Report 5249661-8 (Version None)
Quarter: 2007Q1

REPORT INFORMATION
  Report Type: 
  Country: None (occurrence: None)
  Receive Date: 20070228
  Receipt Date: 20060623
  Transmission Date: 20070707
  Serious: No
  Sender: FDA-Public Use
  Company Number: US-GLAXOSMITHKLINE-A0610199A

PATIENT

DRUGS (1)
  1. IMITREX [Suspect]
     Indication: HEADACHE
     Route: 058

REACTIONS (1)
  - DRUG INEFFECTIVE [None]
